FAERS Safety Report 25462451 (Version 2)
Quarter: 2025Q3

REPORT INFORMATION
  Report Type: Spontaneous
  Country: US (occurrence: US)
  Receive Date: 20250620
  Receipt Date: 20250729
  Transmission Date: 20251021
  Serious: No
  Sender: IPSEN BIOPHARMACEUTICALS, INC.
  Company Number: US-IPSEN Group, Research and Development-2025-14374

PATIENT
  Age: 12 Year
  Sex: Female
  Weight: 40 kg

DRUGS (5)
  1. TAZVERIK [Suspect]
     Active Substance: TAZEMETOSTAT HYDROBROMIDE
     Indication: Neoplasm malignant
     Dosage: 600 MG TWICE DAILY
     Dates: start: 20250609
  2. TAZVERIK [Suspect]
     Active Substance: TAZEMETOSTAT HYDROBROMIDE
     Indication: Off label use
  3. MIRALAX [Concomitant]
     Active Substance: POLYETHYLENE GLYCOL 3350
  4. OXYCODONE [Concomitant]
     Active Substance: OXYCODONE
  5. SENNA TIME [Concomitant]
     Active Substance: SENNOSIDES A AND B

REACTIONS (2)
  - Off label use [Unknown]
  - Off label use [Unknown]

NARRATIVE: CASE EVENT DATE: 20250609
